FAERS Safety Report 21483941 (Version 1)
Quarter: 2022Q4

REPORT INFORMATION
  Report Type: Spontaneous
  Country: US (occurrence: US)
  Receive Date: 20221020
  Receipt Date: 20221020
  Transmission Date: 20230113
  Serious: No
  Sender: FDA-Public Use
  Company Number: US-CELLTRION INC.-2022US010104

PATIENT

DRUGS (1)
  1. INFLECTRA [Suspect]
     Active Substance: INFLIXIMAB-DYYB
     Indication: Crohn^s disease
     Dosage: UNSPECIFIED MAINTENANCE DOSE EVERY 6 WEEKS (OVER 91 MIN RATE)
     Route: 042

REACTIONS (2)
  - Off label use [Unknown]
  - Incorrect drug administration rate [Unknown]
